FAERS Safety Report 8228635-9 (Version None)
Quarter: 2012Q1

REPORT INFORMATION
  Report Type: 
  Country: None (occurrence: None)
  Receive Date: 20120322
  Receipt Date: 20110222
  Transmission Date: 20120608
  Serious: No
  Sender: FDA-Public Use
  Company Number: US-BRISTOL-MYERS SQUIBB COMPANY-15562077

PATIENT
  Age: 65 Year
  Sex: Male
  Weight: 88 kg

DRUGS (3)
  1. PERCOCET [Concomitant]
  2. ERBITUX [Suspect]
     Indication: COLON CANCER
     Dates: start: 20110101
  3. MORPHINE [Concomitant]

REACTIONS (1)
  - RASH PRURITIC [None]
